FAERS Safety Report 19887466 (Version 2)
Quarter: 2022Q4

REPORT INFORMATION
  Report Type: Spontaneous
  Country: US (occurrence: US)
  Receive Date: 20210928
  Receipt Date: 20221017
  Transmission Date: 20230113
  Serious: No
  Sender: FDA-Public Use
  Company Number: US-CELLTRION INC.-2021US008119

PATIENT

DRUGS (1)
  1. INFLECTRA [Suspect]
     Active Substance: INFLIXIMAB-DYYB
     Indication: Product used for unknown indication
     Dosage: 100MG/INFUSE 400MG INTRAVENOUSLY ON WEEKS 0, 2, AND 6 THEN ONCE EVERY 6 WEEKS THEREAFTER
     Route: 042

REACTIONS (2)
  - Product dose omission issue [Unknown]
  - Product availability issue [Unknown]
